FAERS Safety Report 9145901 (Version 1)
Quarter: 2013Q1

REPORT INFORMATION
  Report Type: Spontaneous
  Country: NL (occurrence: NL)
  Receive Date: 20130307
  Receipt Date: 20130307
  Transmission Date: 20140127
  Serious: Yes (Death)
  Sender: FDA-Public Use
  Company Number: PHHY2013NL021995

PATIENT
  Age: 77 Year
  Sex: Female

DRUGS (4)
  1. ZOMETA [Suspect]
     Indication: LUNG CANCER METASTATIC
     Dosage: 4 MG/ 100 ML,ONCE PER 84 DAYS
     Route: 042
  2. ZOMETA [Suspect]
     Dosage: 4 MG/ 100 ML, ONCE PER 84 DAYS
     Route: 042
     Dates: start: 20110215
  3. ZOMETA [Suspect]
     Dosage: 4 MG/ 100 ML, ONCE PER 84 DAYS
     Route: 042
     Dates: start: 20120927
  4. ZOMETA [Suspect]
     Dosage: 4 MG/ 100 ML, ONCE PER 84 DAYS
     Route: 042
     Dates: start: 20121211

REACTIONS (1)
  - Death [Fatal]
